FAERS Safety Report 4475198-X (Version None)
Quarter: 2004Q4

REPORT INFORMATION
  Report Type: 
  Country: None (occurrence: None)
  Receive Date: 20041012
  Receipt Date: 20040928
  Transmission Date: 20050328
  Serious: Yes (Hospitalization, Other)
  Sender: FDA-Public Use
  Company Number: 033-0981-990283

PATIENT
  Age: 45 Year
  Sex: Male
  Weight: 74 kg

DRUGS (7)
  1. ATORVASTATIN (ATORVASTATIN) [Suspect]
     Indication: CORONARY ARTERY DISEASE
     Dosage: SEE IMAGE
     Route: 048
     Dates: start: 19981202, end: 19990125
  2. ATORVASTATIN (ATORVASTATIN) [Suspect]
     Indication: CORONARY ARTERY DISEASE
     Dosage: SEE IMAGE
     Route: 048
     Dates: start: 19990126, end: 19990203
  3. CARBASALATE CALCIUM (CARBASALATE CALCIUM) [Concomitant]
  4. ACEBUTOLOL HCL [Concomitant]
  5. BROMAZEPAM (BROMAZEPAM) [Concomitant]
  6. PRAZEPAM [Concomitant]
  7. ATORVASTATIN (ATORVASTATIN) [Concomitant]

REACTIONS (14)
  - ALCOHOL USE [None]
  - BLOOD CREATINE PHOSPHOKINASE INCREASED [None]
  - BLOOD CREATINE PHOSPHOKINASE MB INCREASED [None]
  - BLOOD POTASSIUM ABNORMAL [None]
  - CARDIOVASCULAR DISORDER [None]
  - CHEST PAIN [None]
  - CONDITION AGGRAVATED [None]
  - ELECTROCARDIOGRAM T WAVE ABNORMAL [None]
  - HYPERHIDROSIS [None]
  - HYPOKALAEMIA [None]
  - MYALGIA [None]
  - PAIN [None]
  - PAIN IN EXTREMITY [None]
  - PYREXIA [None]
